FAERS Safety Report 16227438 (Version 1)
Quarter: 2019Q2

REPORT INFORMATION
  Report Type: Spontaneous
  Country: US (occurrence: US)
  Receive Date: 20190423
  Receipt Date: 20190423
  Transmission Date: 20190711
  Serious: Yes (Death, Other)
  Sender: FDA-Public Use
  Company Number: US-SILVERGATE PHARMACEUTICALS, INC.-2019SIL00016

PATIENT
  Age: 65 Year
  Sex: Female

DRUGS (2)
  1. FOLIC ACID. [Concomitant]
     Active Substance: FOLIC ACID
     Route: 065
  2. METHOTREXATE. [Suspect]
     Active Substance: METHOTREXATE
     Indication: RHEUMATOID ARTHRITIS
     Dosage: ^LOW DOSE^
     Route: 065

REACTIONS (4)
  - Staphylococcal infection [Fatal]
  - Toxicity to various agents [Fatal]
  - Multiple organ dysfunction syndrome [Fatal]
  - Mouth ulceration [Unknown]
